FAERS Safety Report 20492569 (Version 5)
Quarter: 2022Q2

REPORT INFORMATION
  Report Type: Other
  Country: CA (occurrence: None)
  Receive Date: 20220219
  Receipt Date: 20220429
  Transmission Date: 20220720
  Serious: Yes (Other)
  Sender: FDA-Public Use
  Company Number: CA-ROCHE-3022901

PATIENT
  Sex: Female

DRUGS (5)
  1. HERCEPTIN [Suspect]
     Active Substance: TRASTUZUMAB
     Indication: Breast cancer stage II
     Dosage: DETAILS NOT KNOWN, RECEIVED OUTSIDE OF RPAP
     Route: 042
     Dates: start: 20210301
  2. PERJETA [Suspect]
     Active Substance: PERTUZUMAB
     Indication: Breast cancer stage II
     Dosage: RECEIVED 7 CYCLES TOTAL BEFORE ENROLLING IN RPAP.
     Route: 042
     Dates: end: 20211007
  3. PERJETA [Suspect]
     Active Substance: PERTUZUMAB
     Dosage: 420 MG MILLIGRAM(S)
     Route: 042
     Dates: start: 20211102
  4. TYLENOL [Concomitant]
     Active Substance: ACETAMINOPHEN
  5. PAXLOVID [Concomitant]
     Active Substance: NIRMATRELVIR\RITONAVIR
     Dates: start: 20220408, end: 20220411

REACTIONS (5)
  - Pneumonia [Unknown]
  - Dyspnoea [Unknown]
  - SARS-CoV-2 test positive [Recovered/Resolved]
  - Pyrexia [Recovered/Resolved]
  - Oropharyngeal pain [Recovered/Resolved]

NARRATIVE: CASE EVENT DATE: 20220101
